FAERS Safety Report 6612105-5 (Version None)
Quarter: 2010Q1

REPORT INFORMATION
  Report Type: 
  Country: None (occurrence: None)
  Receive Date: 20100302
  Receipt Date: 20100302
  Transmission Date: 20100710
  Serious: Yes (Disabling, Other)
  Sender: FDA-Public Use
  Company Number: None

PATIENT
  Sex: Female
  Weight: 70.7611 kg

DRUGS (1)
  1. AVELOX [Suspect]
     Dosage: 1 PILL PER DAY PO
     Route: 048

REACTIONS (2)
  - SWELLING [None]
  - TENDON PAIN [None]
